FAERS Safety Report 10143904 (Version 3)
Quarter: 2014Q2

REPORT INFORMATION
  Report Type: Spontaneous
  Country: JP (occurrence: JP)
  Receive Date: 20140430
  Receipt Date: 20140523
  Transmission Date: 20141212
  Serious: Yes (Other)
  Sender: FDA-Public Use
  Company Number: JP-JNJFOC-20140414629

PATIENT
  Age: 67 Year
  Sex: Female

DRUGS (14)
  1. SOVRIAD [Suspect]
     Indication: PRODUCT USED FOR UNKNOWN INDICATION
     Route: 048
     Dates: start: 20140319, end: 20140416
  2. COPEGUS [Concomitant]
     Indication: PRODUCT USED FOR UNKNOWN INDICATION
     Route: 048
     Dates: start: 20140319
  3. PEGASYS [Concomitant]
     Indication: PRODUCT USED FOR UNKNOWN INDICATION
     Route: 058
  4. NORVASC [Concomitant]
     Route: 048
     Dates: start: 20140402
  5. PLAVIX [Concomitant]
     Route: 048
     Dates: start: 20140402
  6. MEVALOTIN [Concomitant]
     Route: 048
     Dates: start: 20140402
  7. PATANOL [Concomitant]
     Route: 047
     Dates: start: 20140402
  8. MAGMITT [Concomitant]
     Route: 048
     Dates: start: 20140402
  9. URSO [Concomitant]
     Route: 048
     Dates: start: 20140402
  10. GASTER D [Concomitant]
     Route: 048
     Dates: start: 20140402
  11. PURSENNID [Concomitant]
     Route: 048
     Dates: start: 20140402
  12. FEXOFENADINE HYDROCHLORIDE [Concomitant]
     Route: 048
     Dates: start: 20140402
  13. SIGMART [Concomitant]
     Route: 048
     Dates: start: 20140402
  14. ITOROL [Concomitant]
     Route: 048
     Dates: start: 20140402

REACTIONS (4)
  - Erythema multiforme [Recovered/Resolved]
  - Lymphocyte percentage increased [Unknown]
  - Neutrophil percentage decreased [Unknown]
  - White blood cell count decreased [Unknown]
